FAERS Safety Report 11700931 (Version 2)
Quarter: 2015Q4

REPORT INFORMATION
  Report Type: Spontaneous
  Country: US (occurrence: US)
  Receive Date: 20151105
  Receipt Date: 20151106
  Transmission Date: 20160304
  Serious: No
  Sender: FDA-Public Use
  Company Number: US-BAYER-2015-460959

PATIENT
  Age: 45 Year
  Sex: Female
  Weight: 58.96 kg

DRUGS (2)
  1. ALEVE [Suspect]
     Active Substance: NAPROXEN SODIUM
     Dosage: 2 DF, UNK
     Route: 048
     Dates: start: 20151103
  2. PAMPRIN [Suspect]
     Active Substance: IBUPROFEN
     Dosage: 1 DF, UNK
     Route: 048

REACTIONS (3)
  - Dizziness [None]
  - Product use issue [None]
  - Dizziness [Not Recovered/Not Resolved]

NARRATIVE: CASE EVENT DATE: 20151103
